FAERS Safety Report 6822946-7 (Version None)
Quarter: 2010Q3

REPORT INFORMATION
  Report Type: 
  Country: None (occurrence: None)
  Receive Date: 20100708
  Receipt Date: 20100623
  Transmission Date: 20110219
  Serious: Yes (Hospitalization)
  Sender: FDA-Public Use
  Company Number: A0807699A

PATIENT
  Age: 51 Year
  Sex: Male
  Weight: 97.7 kg

DRUGS (6)
  1. AVANDAMET [Suspect]
     Dosage: 1TAB PER DAY
     Route: 048
     Dates: start: 20050201
  2. AVANDIA [Suspect]
     Dosage: 4MG PER DAY
     Route: 048
     Dates: start: 20050617
  3. AVANDIA [Concomitant]
  4. FLOMAX [Concomitant]
  5. AVODART [Concomitant]
  6. ACTOS [Concomitant]

REACTIONS (2)
  - CORONARY ARTERY DISEASE [None]
  - MYOCARDIAL INFARCTION [None]
